FAERS Safety Report 20602094 (Version 1)
Quarter: 2022Q1

REPORT INFORMATION
  Report Type: Spontaneous
  Country: US (occurrence: None)
  Receive Date: 20220315
  Receipt Date: 20220315
  Transmission Date: 20220423
  Serious: Yes (Hospitalization, Disabling)
  Sender: FDA-Public Use
  Company Number: None

PATIENT
  Age: 23 Year
  Sex: Female
  Weight: 51.75 kg

DRUGS (1)
  1. SEPTOCAINE [Suspect]
     Active Substance: ARTICAINE HYDROCHLORIDE\EPINEPHRINE BITARTRATE
     Indication: Endodontic procedure
     Dates: start: 20220207, end: 20220314

REACTIONS (4)
  - Body temperature decreased [None]
  - Palpitations [None]
  - Arrhythmia [None]
  - Injection related reaction [None]

NARRATIVE: CASE EVENT DATE: 20220315
